FAERS Safety Report 8583170-3 (Version None)
Quarter: 2012Q3

REPORT INFORMATION
  Report Type: 
  Country: None (occurrence: None)
  Receive Date: 20120809
  Receipt Date: 20110405
  Transmission Date: 20120928
  Serious: Yes (Other)
  Sender: FDA-Public Use
  Company Number: PHHY2011FR117072

PATIENT
  Age: 30 Year
  Sex: Male

DRUGS (4)
  1. INTERFERON GAMMA NOS [Suspect]
     Indication: ANTIFUNGAL TREATMENT
  2. CASPOFUNGIN ACETATE [Suspect]
     Indication: ANTIFUNGAL TREATMENT
     Dosage: 150 MG PER DAY
  3. TERBINAFINE HCL [Suspect]
     Indication: ANTIFUNGAL TREATMENT
  4. POSACONAZOLE [Suspect]
     Indication: ANTIFUNGAL TREATMENT
     Dosage: 150 MG

REACTIONS (2)
  - INTRASPINAL ABSCESS [None]
  - BRAIN ABSCESS [None]
